FAERS Safety Report 4962135-4 (Version None)
Quarter: 2006Q1

REPORT INFORMATION
  Report Type: 
  Country: None (occurrence: None)
  Receive Date: 20060329
  Receipt Date: 20060320
  Transmission Date: 20060701
  Serious: Yes (Hospitalization)
  Sender: FDA-Public Use
  Company Number: GXKR2006US01632

PATIENT
  Age: 14 Year
  Sex: Male

DRUGS (6)
  1. VINBLASTINE (NGX) (VINBLASTINE SULFATE) [Suspect]
     Indication: HODGKIN'S DISEASE
  2. DOXORUBICIN HCL [Suspect]
     Indication: HODGKIN'S DISEASE
  3. METHOTREXATE [Suspect]
     Indication: HODGKIN'S DISEASE
  4. PREDNISONE [Suspect]
     Indication: HODGKIN'S DISEASE
  5. ITRACONAZOLE [Suspect]
     Indication: HISTOPLASMOSIS
     Dosage: SEE IMAGE
  6. ITRACONAZOLE [Suspect]
     Indication: HISTOPLASMOSIS
     Dosage: SEE IMAGE

REACTIONS (12)
  - ABDOMINAL PAIN [None]
  - BONE MARROW FAILURE [None]
  - DRUG INTERACTION [None]
  - FEBRILE NEUTROPENIA [None]
  - HAEMORRHAGIC DIATHESIS [None]
  - INFLUENZA [None]
  - MALAISE [None]
  - MUCOSAL INFLAMMATION [None]
  - NEURALGIA [None]
  - NEUROTOXICITY [None]
  - ORAL INTAKE REDUCED [None]
  - PARAESTHESIA [None]
